FAERS Safety Report 18095978 (Version 1)
Quarter: 2020Q3

REPORT INFORMATION
  Report Type: Report from Study
  Country: BR (occurrence: BR)
  Receive Date: 20200730
  Receipt Date: 20200730
  Transmission Date: 20201103
  Serious: Yes (Death, Other)
  Sender: FDA-Public Use
  Company Number: NVSC2020BR213093

PATIENT
  Sex: Male

DRUGS (1)
  1. PAZOPANIB [Suspect]
     Active Substance: PAZOPANIB
     Indication: RENAL CANCER
     Dosage: UNK
     Route: 065

REACTIONS (8)
  - Myocardial infarction [Fatal]
  - Nerve injury [Unknown]
  - Pain in extremity [Unknown]
  - Cardiac disorder [Unknown]
  - Gastric ulcer [Unknown]
  - Perforated ulcer [Unknown]
  - Pain [Unknown]
  - Infection [Unknown]
